FAERS Safety Report 13436969 (Version 2)
Quarter: 2018Q1

REPORT INFORMATION
  Report Type: Spontaneous
  Country: US (occurrence: US)
  Receive Date: 20170413
  Receipt Date: 20180329
  Transmission Date: 20180508
  Serious: No
  Sender: FDA-Public Use
  Company Number: US-SA-2017SA022591

PATIENT
  Age: 41 Year
  Sex: Female

DRUGS (1)
  1. ALLEGRA-D [Suspect]
     Active Substance: FEXOFENADINE\PSEUDOEPHEDRINE
     Dosage: PRODUCT WAS STARTED 2002-2003
     Route: 048

REACTIONS (6)
  - Sneezing [Unknown]
  - Headache [Unknown]
  - Lacrimation increased [Unknown]
  - Eye pruritus [Unknown]
  - Drug ineffective [Unknown]
  - Rhinorrhoea [Unknown]
